FAERS Safety Report 4522000-3 (Version None)
Quarter: 2004Q4

REPORT INFORMATION
  Report Type: 
  Country: None (occurrence: None)
  Receive Date: 20041207
  Receipt Date: 20041123
  Transmission Date: 20050328
  Serious: Yes (Other)
  Sender: FDA-Public Use
  Company Number: USA030127542

PATIENT
  Age: 59 Year
  Sex: Female
  Weight: 56 kg

DRUGS (15)
  1. FORTEO [Suspect]
     Indication: OSTEOPOROSIS
     Dosage: 20 UG/DAY
     Dates: start: 20030130
  2. AMBIEN [Concomitant]
  3. CELEBREX [Concomitant]
  4. CYTOTEC [Concomitant]
  5. ENBREL [Concomitant]
  6. ESTRADERM [Concomitant]
  7. FOLIC ACID [Concomitant]
  8. LANOXIN [Concomitant]
  9. LIPITOR [Concomitant]
  10. METHADONE HCL [Concomitant]
  11. METHOTREXATE [Concomitant]
  12. PREDNISONE [Concomitant]
  13. PREVACID [Concomitant]
  14. VICODIN [Concomitant]
  15. ULTRASE (PANCRELIPASE) [Concomitant]

REACTIONS (7)
  - ARTHRALGIA [None]
  - DISEASE RECURRENCE [None]
  - INJECTION SITE JOINT PAIN [None]
  - MEDICATION ERROR [None]
  - PAIN IN EXTREMITY [None]
  - PHARMACEUTICAL PRODUCT COMPLAINT [None]
  - SPINAL FRACTURE [None]
